FAERS Safety Report 11334456 (Version 5)
Quarter: 2016Q1

REPORT INFORMATION
  Report Type: Report from Study
  Country: US (occurrence: US)
  Receive Date: 20150804
  Receipt Date: 20160301
  Transmission Date: 20160525
  Serious: No
  Sender: FDA-Public Use
  Company Number: US-AMGEN-USASP2015076803

PATIENT
  Age: 37 Year
  Sex: Female

DRUGS (5)
  1. ENBREL [Suspect]
     Active Substance: ETANERCEPT
     Indication: PALINDROMIC RHEUMATISM
  2. PLAQUENIL [Concomitant]
     Active Substance: HYDROXYCHLOROQUINE SULFATE
     Indication: CONDITION AGGRAVATED
     Dosage: UNK
  3. CYMBALTA [Concomitant]
     Active Substance: DULOXETINE HYDROCHLORIDE
     Dosage: UNK
  4. METHOTREXATE [Concomitant]
     Active Substance: METHOTREXATE
     Dosage: 6 TABLETS, QWK
  5. ENBREL [Suspect]
     Active Substance: ETANERCEPT
     Indication: RHEUMATOID ARTHRITIS
     Dosage: 50 MG, QWK
     Route: 065
     Dates: start: 20140620

REACTIONS (10)
  - Erythema [Unknown]
  - Musculoskeletal disorder [Unknown]
  - Tooth fracture [Not Recovered/Not Resolved]
  - Injection site pain [Unknown]
  - Condition aggravated [Recovering/Resolving]
  - Benign breast neoplasm [Unknown]
  - Arthralgia [Unknown]
  - Off label use [Unknown]
  - Pain in extremity [Unknown]
  - Skin warm [Unknown]

NARRATIVE: CASE EVENT DATE: 20140620
